FAERS Safety Report 11922521 (Version 1)
Quarter: 2016Q1

REPORT INFORMATION
  Report Type: Spontaneous
  Country: TW (occurrence: TW)
  Receive Date: 20160115
  Receipt Date: 20160115
  Transmission Date: 20160526
  Serious: Yes (Other)
  Sender: FDA-Public Use
  Company Number: TW-HQ SPECIALTY-TW-2016INT000002

PATIENT
  Sex: Female

DRUGS (6)
  1. CISPLATIN. [Suspect]
     Active Substance: CISPLATIN
     Indication: LIP AND/OR ORAL CAVITY CANCER
     Dosage: 30/M2 Q2WK
  2. TEGAFUR W/URACIL [Suspect]
     Active Substance: TEGAFUR\URACIL
     Indication: LIP AND/OR ORAL CAVITY CANCER
     Dosage: 1 # TID
  3. CYCLOPHOSPHAMIDE. [Suspect]
     Active Substance: CYCLOPHOSPHAMIDE
     Indication: LIP AND/OR ORAL CAVITY CANCER
     Dosage: 50 MG, QD
  4. METHOTREXATE [Suspect]
     Active Substance: METHOTREXATE
     Indication: LIP AND/OR ORAL CAVITY CANCER
     Dosage: 50 MG,Q2WK
  5. RAPAMYCIN [Suspect]
     Active Substance: SIROLIMUS
     Indication: LIP AND/OR ORAL CAVITY CANCER
     Dosage: 2 MG, UNK
  6. HYDROXYCHLOROQUINE [Suspect]
     Active Substance: HYDROXYCHLOROQUINE
     Indication: LIP AND/OR ORAL CAVITY CANCER
     Dosage: 400 MG, UNK

REACTIONS (2)
  - Cardiotoxicity [Recovered/Resolved]
  - Ejection fraction decreased [Recovered/Resolved]
